FAERS Safety Report 4578335-1 (Version None)
Quarter: 2005Q1

REPORT INFORMATION
  Report Type: 
  Country: None (occurrence: None)
  Receive Date: 20050211
  Receipt Date: 20050204
  Transmission Date: 20050727
  Serious: Yes (Other)
  Sender: FDA-Public Use
  Company Number: 200511066GDDC

PATIENT
  Age: 81 Year
  Sex: Male

DRUGS (5)
  1. ARAVA [Suspect]
     Indication: ARTHRITIS
     Route: 048
     Dates: start: 20041130, end: 20050130
  2. RISEDRONATE SODIUM [Concomitant]
     Route: 048
     Dates: start: 20010222
  3. SALAZOPYRIN [Concomitant]
     Dosage: DOSE: 500 MG X 2
     Route: 048
     Dates: start: 20030318, end: 20041027
  4. ASPIRIN [Concomitant]
     Route: 048
  5. PREDNISOLONE [Concomitant]
     Route: 048
     Dates: start: 19930727

REACTIONS (3)
  - FEELING ABNORMAL [None]
  - HYPERHIDROSIS [None]
  - LOSS OF CONSCIOUSNESS [None]
